FAERS Safety Report 19673350 (Version 2)
Quarter: 2022Q2

REPORT INFORMATION
  Report Type: Report from Study
  Country: FR (occurrence: FR)
  Receive Date: 20210809
  Receipt Date: 20220531
  Transmission Date: 20220721
  Serious: Yes (Life-Threatening, Hospitalization, Other)
  Sender: FDA-Public Use
  Company Number: FR-AUROBINDO-AUR-APL-2021-033005

PATIENT
  Age: 66 Year
  Sex: Male

DRUGS (2)
  1. FLECAINIDE [Suspect]
     Active Substance: FLECAINIDE
     Indication: Atrial fibrillation
     Dosage: 300 MILLIGRAM
     Route: 048
  2. VERNAKALANT [Suspect]
     Active Substance: VERNAKALANT
     Indication: Atrial fibrillation
     Dosage: UNK
     Route: 041

REACTIONS (5)
  - Sinus arrest [Recovered/Resolved]
  - Drug interaction [Unknown]
  - Treatment failure [Unknown]
  - Dizziness [Recovered/Resolved]
  - Drug ineffective [Unknown]
